FAERS Safety Report 4640099-0 (Version None)
Quarter: 2005Q2

REPORT INFORMATION
  Report Type: 
  Country: None (occurrence: None)
  Receive Date: 20050420
  Receipt Date: 20050414
  Transmission Date: 20051028
  Serious: Yes (Other)
  Sender: FDA-Public Use
  Company Number: PHEH2005US04341

PATIENT
  Age: 52 Year
  Sex: Female

DRUGS (1)
  1. VIVELLE-DOT [Suspect]
     Indication: MENOPAUSE
     Dosage: 0.05MG TWICE A WEEK
     Route: 062

REACTIONS (5)
  - DRUG INEFFECTIVE [None]
  - FALL [None]
  - FEELING HOT [None]
  - FOOT FRACTURE [None]
  - NIGHT SWEATS [None]
